FAERS Safety Report 26008325 (Version 1)
Quarter: 2025Q4

REPORT INFORMATION
  Report Type: Spontaneous
  Country: US (occurrence: US)
  Receive Date: 20251106
  Receipt Date: 20251106
  Transmission Date: 20260118
  Serious: No
  Sender: SANOFI AVENTIS
  Company Number: US-SA-2025SA325820

PATIENT
  Age: 62 Year
  Sex: Female

DRUGS (8)
  1. DUPIXENT [Suspect]
     Active Substance: DUPILUMAB
     Indication: Asthma
     Dosage: 300 MG
     Route: 058
     Dates: start: 20241010
  2. PROGESTERONE [Concomitant]
     Active Substance: PROGESTERONE
     Dosage: UNK
  3. MONTELUKAST [Concomitant]
     Active Substance: MONTELUKAST
     Dosage: UNK
  4. MAGNESIUM [Concomitant]
     Active Substance: MAGNESIUM
     Dosage: UNK
  5. TESTOSTERONE [Concomitant]
     Active Substance: TESTOSTERONE
     Dosage: UNK
  6. FLUTICASONE [Concomitant]
     Active Substance: FLUTICASONE
     Dosage: UNK
  7. ESTRADIOL [Concomitant]
     Active Substance: ESTRADIOL
     Dosage: UNK
  8. METOPROLOL [Concomitant]
     Active Substance: METOPROLOL
     Dosage: UNK

REACTIONS (1)
  - Intentional product misuse [Unknown]
